FAERS Safety Report 9677165 (Version 2)
Quarter: 2014Q1

REPORT INFORMATION
  Report Type: Spontaneous
  Country: IT (occurrence: IT)
  Receive Date: 20131108
  Receipt Date: 20140106
  Transmission Date: 20141002
  Serious: Yes (Hospitalization, Other)
  Sender: FDA-Public Use
  Company Number: IT-BRISTOL-MYERS SQUIBB COMPANY-19703883

PATIENT
  Age: 83 Year
  Sex: Female

DRUGS (7)
  1. COUMADIN TABS 5 MG [Suspect]
     Dosage: 1 DF : 1 UNIT
     Route: 048
     Dates: start: 20110101, end: 20130809
  2. CEFIXORAL [Interacting]
     Indication: URINARY TRACT INFECTION
     Dosage: TABLET?1 UNIT
     Route: 048
     Dates: start: 20130803, end: 20130809
  3. RAMIPRIL [Concomitant]
  4. ALLOPURINOL [Concomitant]
  5. LASIX [Concomitant]
     Dosage: TABLET
  6. CONGESCOR [Concomitant]
  7. LANOXIN [Concomitant]

REACTIONS (2)
  - Hypocoagulable state [Recovered/Resolved]
  - Drug interaction [Unknown]
